FAERS Safety Report 6475195-9 (Version None)
Quarter: 2009Q4

REPORT INFORMATION
  Report Type: 
  Country: None (occurrence: None)
  Receive Date: 20091204
  Receipt Date: 20090421
  Transmission Date: 20100525
  Serious: Yes (Other)
  Sender: FDA-Public Use
  Company Number: US-ELI_LILLY_AND_COMPANY-US200903007547

PATIENT
  Sex: Male

DRUGS (22)
  1. ZYPREXA [Suspect]
     Indication: PSYCHOTIC DISORDER
     Dosage: 10 MG, 2/D
     Dates: start: 20081024, end: 20081029
  2. ZYPREXA [Suspect]
     Dosage: 30 MG, UNK
     Dates: start: 20081029, end: 20081229
  3. ZYPREXA [Suspect]
     Dosage: 10 MG, EACH EVENING
     Dates: start: 20081229, end: 20090104
  4. HALOPERIDOL [Concomitant]
     Indication: SCHIZOAFFECTIVE DISORDER
     Dosage: 5 MG, UNK
     Dates: start: 20081104
  5. HALOPERIDOL [Concomitant]
     Dosage: 15 MG, EACH EVENING
     Dates: end: 20081209
  6. TRAZODONE [Concomitant]
     Indication: SLEEP DISORDER
     Dosage: 15 MG, AS NEEDED
     Dates: end: 20081102
  7. TRAZODONE [Concomitant]
     Dosage: 50 MG, AS NEEDED
     Dates: start: 20081110
  8. DEPAKOTE [Concomitant]
     Indication: SCHIZOAFFECTIVE DISORDER
     Dosage: 1000 MG, UNK
     Dates: start: 20081114, end: 20081215
  9. DEPAKOTE [Concomitant]
     Dosage: 1750 MG, EACH EVENING
  10. DEPAKOTE [Concomitant]
     Dosage: 1500 MG, EACH EVENING
  11. CITALOPRAM HYDROBROMIDE [Concomitant]
     Indication: DEPRESSION
     Dosage: 20 MG, UNK
     Dates: start: 20081125, end: 20081209
  12. CITALOPRAM HYDROBROMIDE [Concomitant]
     Dosage: 40 MG, EACH MORNING
  13. METOPROLOL [Concomitant]
     Indication: HYPERTENSION
     Dosage: 12.5 MG, UNK
  14. FISH OIL [Concomitant]
     Indication: DYSLIPIDAEMIA
     Dosage: 4800 MG, UNK
  15. ASPIRIN [Concomitant]
     Dosage: 325 MG, EACH MORNING
  16. LISINOPRIL [Concomitant]
     Indication: HYPERTENSION
     Dosage: 2.5 MG, EACH MORNING
     Dates: end: 20081209
  17. ATIVAN [Concomitant]
     Indication: AGITATION
     Dosage: 2 MG, AS NEEDED
     Route: 048
  18. SEROQUEL [Concomitant]
     Indication: PSYCHOTIC DISORDER
     Dosage: 100 MG, EACH MORNING
  19. SEROQUEL [Concomitant]
     Dosage: 400 MG, EACH EVENING
  20. SEROQUEL [Concomitant]
     Dosage: 500 MG, EACH EVENING
  21. SEROQUEL [Concomitant]
     Dosage: 200 MG, AS NEEDED
  22. SEROQUEL [Concomitant]
     Dosage: 300 MG, EACH EVENING

REACTIONS (10)
  - ANGINA UNSTABLE [None]
  - BLOOD CREATINE PHOSPHOKINASE INCREASED [None]
  - BLOOD GLUCOSE INCREASED [None]
  - BLOOD TRIGLYCERIDES INCREASED [None]
  - DIABETES MELLITUS [None]
  - EOSINOPHIL COUNT INCREASED [None]
  - HIGH DENSITY LIPOPROTEIN DECREASED [None]
  - MICROCYTIC ANAEMIA [None]
  - OVERDOSE [None]
  - RHABDOMYOLYSIS [None]
